FAERS Safety Report 15586461 (Version 2)
Quarter: 2018Q4

REPORT INFORMATION
  Report Type: Spontaneous
  Country: US (occurrence: US)
  Receive Date: 20181105
  Receipt Date: 20181218
  Transmission Date: 20190205
  Serious: Yes (Life-Threatening, Hospitalization, Other)
  Sender: FDA-Public Use
  Company Number: US-JUBILANT CADISTA PHARMACEUTICALS-2018JUB00440

PATIENT
  Age: 64 Year
  Sex: Male
  Weight: 65.3 kg

DRUGS (25)
  1. PREDNISONE. [Suspect]
     Active Substance: PREDNISONE
     Dosage: 5 MG, 1X/DAY
     Route: 048
     Dates: start: 20180505, end: 20180513
  2. PREDNISONE. [Suspect]
     Active Substance: PREDNISONE
     Dosage: 20 MG, 1X/DAY
     Route: 048
     Dates: start: 20180620, end: 20180629
  3. BASAGLAR [Concomitant]
     Active Substance: INSULIN GLARGINE
  4. BECLOMETHASONE DIPROPIONATE [Concomitant]
     Active Substance: BECLOMETHASONE DIPROPIONATE
  5. ATIVAN [Concomitant]
     Active Substance: LORAZEPAM
  6. ROXICODONE [Concomitant]
     Active Substance: OXYCODONE HYDROCHLORIDE
  7. MAGNESIUM CHLORIDE. [Concomitant]
     Active Substance: MAGNESIUM CHLORIDE
  8. PREDNISONE. [Suspect]
     Active Substance: PREDNISONE
     Dosage: 5 MG, EVERY 48 HOURS
     Route: 048
     Dates: start: 20180504, end: 20180504
  9. PREDNISONE. [Suspect]
     Active Substance: PREDNISONE
     Dosage: 10 MG, 1X/DAY
     Route: 048
     Dates: start: 20180630, end: 20180701
  10. VALCYTE [Concomitant]
     Active Substance: VALGANCICLOVIR HYDROCHLORIDE
     Dosage: UNK
     Dates: start: 20170205
  11. LOPID [Concomitant]
     Active Substance: GEMFIBROZIL
  12. CEFTIN [Concomitant]
     Active Substance: CEFUROXIME AXETIL
  13. HUMALOG KWIKPEN [Concomitant]
     Active Substance: INSULIN LISPRO
  14. INCB018424 (RUXOLITINIB) [Suspect]
     Active Substance: RUXOLITINIB
     Indication: ACUTE GRAFT VERSUS HOST DISEASE
     Dosage: 10 MG, 2X/DAY
     Route: 048
     Dates: start: 20180104
  15. IMODIUM [Concomitant]
     Active Substance: LOPERAMIDE HYDROCHLORIDE
  16. AMBIEN [Concomitant]
     Active Substance: ZOLPIDEM TARTRATE
  17. ELIQUIS [Concomitant]
     Active Substance: APIXABAN
  18. ZOVIRAX [Concomitant]
     Active Substance: ACYCLOVIR
     Dosage: UNK
     Dates: start: 20171128
  19. PREDNISONE. [Suspect]
     Active Substance: PREDNISONE
     Indication: ACUTE GRAFT VERSUS HOST DISEASE
     Dosage: 5 MG, EVERY 48 HOURS
     Route: 048
     Dates: start: 20180430, end: 20180503
  20. PREDNISONE. [Suspect]
     Active Substance: PREDNISONE
     Dosage: 5 MG, EVERY 48 HOURS
     Route: 048
     Dates: start: 20180514, end: 20180524
  21. PREDNISONE. [Suspect]
     Active Substance: PREDNISONE
     Dosage: 5 MG, 1X/DAY
     Route: 048
     Dates: start: 20180702, end: 20180709
  22. MELATONIN [Concomitant]
     Active Substance: MELATONIN
  23. THORAZINE [Concomitant]
     Active Substance: CHLORPROMAZINE
  24. VORICONAZOLE. [Concomitant]
     Active Substance: VORICONAZOLE
     Dosage: UNK
     Dates: start: 20171222
  25. PRILOSEC [Concomitant]
     Active Substance: OMEPRAZOLE MAGNESIUM

REACTIONS (11)
  - Bronchopulmonary aspergillosis [Recovered/Resolved]
  - Multiple organ dysfunction syndrome [Not Recovered/Not Resolved]
  - Pneumonia [Not Recovered/Not Resolved]
  - Febrile neutropenia [Unknown]
  - Ejection fraction decreased [Not Recovered/Not Resolved]
  - Enterovirus infection [Recovered/Resolved]
  - Nocardia sepsis [Recovered/Resolved]
  - Rhinovirus infection [Recovered/Resolved]
  - Orthostatic hypotension [Unknown]
  - Loss of consciousness [Recovered/Resolved]
  - Pulmonary oedema [Unknown]

NARRATIVE: CASE EVENT DATE: 2018
